FAERS Safety Report 5807365-4 (Version None)
Quarter: 2008Q3

REPORT INFORMATION
  Report Type: 
  Country: None (occurrence: None)
  Receive Date: 20080710
  Receipt Date: 20080707
  Transmission Date: 20090109
  Serious: No
  Sender: FDA-Public Use
  Company Number: APP200800558

PATIENT
  Age: 52 Year
  Sex: Male
  Weight: 65.7 kg

DRUGS (2)
  1. HEPARIN SODIUM INJECTION [Suspect]
     Indication: THROMBOSIS PROPHYLAXIS
     Dosage: 5000 USP UNITS, 1 IN 8 HR, SUBCUTANEOUS
     Route: 058
     Dates: start: 20070402, end: 20080407
  2. HEPARIN SODIUM INJECTION [Suspect]
     Indication: DIALYSIS
     Dosage: 5000 USP UNITS, PER DIALYSIS, INTRAVENOUS
     Route: 042

REACTIONS (3)
  - ANTIBODY TEST POSITIVE [None]
  - HEPARIN-INDUCED THROMBOCYTOPENIA TEST [None]
  - PLATELET COUNT DECREASED [None]
